FAERS Safety Report 11680820 (Version 1)
Quarter: 2015Q4

REPORT INFORMATION
  Report Type: Spontaneous
  Country: SE (occurrence: SE)
  Receive Date: 20151029
  Receipt Date: 20151029
  Transmission Date: 20160304
  Serious: Yes (Life-Threatening)
  Sender: FDA-Public Use
  Company Number: SE-ROCHE-1650931

PATIENT
  Age: 53 Year
  Sex: Male

DRUGS (7)
  1. SOVALDI [Suspect]
     Active Substance: SOFOSBUVIR
     Indication: HEPATITIS C
     Dosage: DATE OF MOST RECENT DOSE:20/MAR/2015
     Route: 048
     Dates: start: 20141004
  2. OXYCONTIN [Concomitant]
     Active Substance: OXYCODONE HYDROCHLORIDE
     Route: 065
  3. COPEGUS [Suspect]
     Active Substance: RIBAVIRIN
     Indication: HEPATITIS C
     Dosage: 3+0+2, DATE OF LAST DOSE:20/MAR/2015
     Route: 048
     Dates: start: 20141004
  4. DAKLINZA [Suspect]
     Active Substance: DACLATASVIR
     Indication: HEPATITIS C
     Dosage: DATE OF MOST RECENT DOSE: 20/MAR/2015
     Route: 048
     Dates: start: 20141004
  5. QUETIAPINE [Concomitant]
     Active Substance: QUETIAPINE
     Route: 065
  6. OMEPRAZOLE. [Concomitant]
     Active Substance: OMEPRAZOLE
     Route: 065
  7. NAPROXEN. [Concomitant]
     Active Substance: NAPROXEN
     Route: 065

REACTIONS (1)
  - Hepatic neoplasm [Not Recovered/Not Resolved]

NARRATIVE: CASE EVENT DATE: 20151007
